FAERS Safety Report 6971205-0 (Version None)
Quarter: 2010Q3

REPORT INFORMATION
  Report Type: 
  Country: None (occurrence: None)
  Receive Date: 20100908
  Receipt Date: 20100825
  Transmission Date: 20110219
  Serious: Yes (Hospitalization)
  Sender: FDA-Public Use
  Company Number: PL-WATSON-2010-11649

PATIENT
  Age: 52 Year
  Sex: Male

DRUGS (2)
  1. PREDNISOLONE [Suspect]
     Indication: PEMPHIGUS
     Dosage: 0.8 MG/KG, UNKNOWN
     Route: 042
  2. AZATHIOPRINE [Suspect]
     Indication: PEMPHIGUS
     Dosage: 150 MG, DAILY

REACTIONS (3)
  - EXTRADURAL ABSCESS [None]
  - HAEMORRHAGIC STROKE [None]
  - PNEUMONIA [None]
